FAERS Safety Report 4871631-X (Version None)
Quarter: 2006Q1

REPORT INFORMATION
  Report Type: 
  Country: None (occurrence: None)
  Receive Date: 20060104
  Receipt Date: 20050624
  Transmission Date: 20060701
  Serious: Yes (Hospitalization)
  Sender: FDA-Public Use
  Company Number: PHNU2005DE02371

PATIENT
  Age: 40 Year
  Sex: Male

DRUGS (6)
  1. CLOZARIL [Suspect]
     Indication: SCHIZOAFFECTIVE DISORDER
     Dosage: UP TO 500 MG/DAY
     Route: 048
     Dates: start: 20010201, end: 20020301
  2. CLOZARIL [Suspect]
     Dosage: UP TO 625 MG/DAY
     Route: 048
     Dates: start: 20030301, end: 20050125
  3. CLOZARIL [Suspect]
     Dosage: UP TO 550 MG/DAY
     Route: 048
     Dates: start: 20050126, end: 20050127
  4. RISPERDAL [Suspect]
     Dosage: 4 MG, QD
     Route: 048
     Dates: start: 20000301, end: 20040127
  5. VALPROATE SODIUM [Concomitant]
     Dosage: 1500 MG/DAY
     Route: 048
     Dates: start: 20030401, end: 20050127
  6. RESONIUM A [Concomitant]
     Dosage: 45 G/DAY
     Route: 048
     Dates: start: 20021001, end: 20050127

REACTIONS (4)
  - ASPARTATE AMINOTRANSFERASE INCREASED [None]
  - BLOOD CREATINE PHOSPHOKINASE INCREASED [None]
  - DRUG INTERACTION [None]
  - RHABDOMYOLYSIS [None]
